FAERS Safety Report 22251132 (Version 1)
Quarter: 2023Q2

REPORT INFORMATION
  Report Type: Spontaneous
  Country: US (occurrence: None)
  Receive Date: 20230425
  Receipt Date: 20230425
  Transmission Date: 20230721
  Serious: No
  Sender: FDA-Public Use
  Company Number: None

PATIENT
  Age: 28 Year

DRUGS (1)
  1. AUVELITY [Suspect]
     Active Substance: BUPROPION HYDROCHLORIDE\DEXTROMETHORPHAN HYDROBROMIDE
     Indication: Depression
     Route: 048
     Dates: start: 20230421

REACTIONS (5)
  - Dizziness [None]
  - Brain fog [None]
  - Nausea [None]
  - Somnolence [None]
  - Feeling abnormal [None]

NARRATIVE: CASE EVENT DATE: 20230423
